FAERS Safety Report 6353293-8 (Version None)
Quarter: 2009Q3

REPORT INFORMATION
  Report Type: 
  Country: None (occurrence: None)
  Receive Date: 20090912
  Receipt Date: 20090622
  Transmission Date: 20100115
  Serious: Yes (Other)
  Sender: FDA-Public Use
  Company Number: US-ABBOTT-08P-163-0455603-00

PATIENT
  Sex: Female
  Weight: 42.676 kg

DRUGS (16)
  1. HUMIRA [Suspect]
     Indication: RHEUMATOID ARTHRITIS
     Route: 058
     Dates: start: 20070406
  2. ADVIR DISK [Concomitant]
     Indication: CHRONIC OBSTRUCTIVE PULMONARY DISEASE
     Dosage: UNIT: 100/50
     Route: 055
     Dates: start: 20030101
  3. SIMVASTATIN [Concomitant]
     Indication: BLOOD CHOLESTEROL INCREASED
     Route: 048
     Dates: start: 20050101
  4. CELECOXIB [Concomitant]
     Indication: PAIN
     Route: 048
     Dates: start: 20030101
  5. CELECOXIB [Concomitant]
     Indication: RHEUMATOID ARTHRITIS
  6. CARISOPRODOL [Concomitant]
     Indication: MUSCLE SPASMS
     Route: 048
     Dates: start: 20030101
  7. ALPRAZOLAM [Concomitant]
     Indication: POST-TRAUMATIC STRESS DISORDER
     Route: 061
     Dates: start: 20030101
  8. LIDODERM [Concomitant]
     Indication: PAIN
     Dosage: UNIT: 5% 2 PATCHES DAILY
     Route: 061
     Dates: start: 20050101
  9. PREDNISONE [Concomitant]
     Indication: RHEUMATOID ARTHRITIS
     Route: 048
     Dates: start: 20030101
  10. CYCLOSPORINE [Concomitant]
     Indication: DRY EYE
     Dosage: ONE DROP IN EACH EYE TWO TIMES DAILY
     Route: 061
     Dates: start: 20030101
  11. TRAVITEN [Concomitant]
     Indication: GLAUCOMA
     Route: 061
     Dates: start: 20030101
  12. PADADAY [Concomitant]
     Indication: HYPERSENSITIVITY
     Route: 061
     Dates: start: 20070101
  13. CALCIUM [Concomitant]
     Indication: MINERAL SUPPLEMENTATION
     Route: 048
     Dates: start: 20030101
  14. POTASSIUM CHLORIDE [Concomitant]
     Indication: MUSCLE SPASMS
     Route: 048
     Dates: start: 20070101
  15. POTASSIUM CHLORIDE [Concomitant]
     Indication: OSTEOARTHRITIS
  16. LEVOTHYROXINE SODIUM [Concomitant]
     Indication: HYPOTHYROIDISM
     Route: 048
     Dates: start: 20030101

REACTIONS (3)
  - ABDOMINAL PAIN [None]
  - INCORRECT DOSE ADMINISTERED [None]
  - INJECTION SITE EXTRAVASATION [None]
